FAERS Safety Report 4372241-3 (Version None)
Quarter: 2004Q2

REPORT INFORMATION
  Report Type: 
  Country: None (occurrence: None)
  Receive Date: 20040603
  Receipt Date: 20040603
  Transmission Date: 20050107
  Serious: Yes (Other)
  Sender: FDA-Public Use
  Company Number: None

PATIENT
  Age: 32 Year
  Sex: Female

DRUGS (1)
  1. OPTIRAY ORAL CONTRAST [Suspect]

REACTIONS (2)
  - CONTRAST MEDIA REACTION [None]
  - URTICARIA [None]
